FAERS Safety Report 12962072 (Version 5)
Quarter: 2017Q1

REPORT INFORMATION
  Report Type: Report from Study
  Country: US (occurrence: US)
  Receive Date: 20161121
  Receipt Date: 20170109
  Transmission Date: 20170428
  Serious: Yes (Death, Hospitalization, Other)
  Sender: FDA-Public Use
  Company Number: US-GILEAD-2016-0243972

PATIENT
  Age: 55 Year
  Sex: Male
  Weight: 139.23 kg

DRUGS (8)
  1. AMBRISENTAN [Suspect]
     Active Substance: AMBRISENTAN
     Indication: PULMONARY ARTERIAL HYPERTENSION
     Dosage: 10 MG, QD
     Route: 065
     Dates: start: 20161017
  2. AMBRISENTAN [Suspect]
     Active Substance: AMBRISENTAN
     Dosage: 5 MG, BID
     Route: 065
  3. REMODULIN [Suspect]
     Active Substance: TREPROSTINIL
     Indication: PULMONARY ARTERIAL HYPERTENSION
     Dosage: 0.055 UG/KG, Q1MINUTE
     Route: 041
     Dates: start: 20130926
  4. REMODULIN [Suspect]
     Active Substance: TREPROSTINIL
     Dosage: 0.052 UG/KG, Q1MINUTE
     Route: 041
  5. REMODULIN [Suspect]
     Active Substance: TREPROSTINIL
     Dosage: 0.042 UG/KG, Q1MINUTE
     Route: 041
     Dates: start: 20140924
  6. REMODULIN [Suspect]
     Active Substance: TREPROSTINIL
     Dosage: 0.046 UG/KG, Q1MINUTE
     Route: 041
     Dates: start: 20140926
  7. REMODULIN [Suspect]
     Active Substance: TREPROSTINIL
     Dosage: 0.040 UG/KG, Q1MINUTE
     Route: 041
  8. ADCIRCA [Concomitant]
     Active Substance: TADALAFIL

REACTIONS (5)
  - Pulmonary hypertension [Not Recovered/Not Resolved]
  - Critical illness [Not Recovered/Not Resolved]
  - Malaise [Unknown]
  - Ventricular tachycardia [Unknown]
  - Death [Fatal]

NARRATIVE: CASE EVENT DATE: 201611
